FAERS Safety Report 19205648 (Version 2)
Quarter: 2021Q2

REPORT INFORMATION
  Report Type: Spontaneous
  Country: US (occurrence: US)
  Receive Date: 20210503
  Receipt Date: 20210504
  Transmission Date: 20210717
  Serious: No
  Sender: FDA-Public Use
  Company Number: US-FARMAPROD-202101-0057

PATIENT
  Sex: Female

DRUGS (13)
  1. REFRESH CLASSIC [Concomitant]
     Active Substance: POLYVINYL ALCOHOL\POVIDONE
  2. SYSTANE (HYPROMELLOSE 2910 (4000 MPA.S)) [Concomitant]
     Active Substance: HYPROMELLOSE 2910 (4000 MPA.S)
     Dosage: 3?94%
  3. COLACE [Concomitant]
     Active Substance: DOCUSATE SODIUM
  4. OFLOXACIN. [Concomitant]
     Active Substance: OFLOXACIN
  5. FLAXSEED [Concomitant]
     Active Substance: FLAX SEED
  6. LATANOPROST. [Concomitant]
     Active Substance: LATANOPROST
  7. CALCIUM [Concomitant]
     Active Substance: CALCIUM
     Dosage: 250 MG?12.5 MG
  8. MULTIVITAMIN DAILY [Concomitant]
     Dosage: DAILY
  9. OXERVATE [Suspect]
     Active Substance: CENEGERMIN-BKBJ
     Indication: ULCERATIVE KERATITIS
     Route: 047
     Dates: start: 20201228
  10. FAMCICLOVIR. [Concomitant]
     Active Substance: FAMCICLOVIR
  11. PRAVASTATIN SODIUM. [Concomitant]
     Active Substance: PRAVASTATIN SODIUM
  12. DOXYCYCLINE HYCLATE. [Concomitant]
     Active Substance: DOXYCYCLINE HYCLATE
  13. PREDNISOLONE. [Concomitant]
     Active Substance: PREDNISOLONE
     Dosage: 15 MG/5 ML

REACTIONS (5)
  - Eye pain [Unknown]
  - Swelling of eyelid [Unknown]
  - Eyelid pain [Unknown]
  - Lacrimation increased [Unknown]
  - Photophobia [Unknown]
